FAERS Safety Report 13885915 (Version 1)
Quarter: 2017Q3

REPORT INFORMATION
  Report Type: Spontaneous
  Country: US (occurrence: US)
  Receive Date: 20170821
  Receipt Date: 20170821
  Transmission Date: 20171127
  Serious: No
  Sender: FDA-Public Use
  Company Number: US-APOTEX-2017AP011131

PATIENT
  Age: 29 Year
  Sex: Male

DRUGS (4)
  1. IBUPROFEN. [Concomitant]
     Active Substance: IBUPROFEN
     Indication: PAIN
     Dosage: 800 MG, TID
     Route: 065
  2. GABAPENTIN. [Concomitant]
     Active Substance: GABAPENTIN
     Indication: PAIN
     Dosage: UNK
     Route: 065
  3. GABAPENTIN. [Concomitant]
     Active Substance: GABAPENTIN
     Dosage: 300 MG IN THE MORNING AND 600 MG AT BEDTIME
     Route: 065
  4. TRAMADOL HYDROCHLORIDE. [Suspect]
     Active Substance: TRAMADOL HYDROCHLORIDE
     Indication: BACK PAIN
     Dosage: 50 MG, TID, AS NEEDED
     Route: 065

REACTIONS (4)
  - Anorgasmia [Recovered/Resolved]
  - Ejaculation failure [Recovered/Resolved]
  - Erectile dysfunction [Recovered/Resolved]
  - Polyuria [Recovered/Resolved]
